FAERS Safety Report 7399811-2 (Version None)
Quarter: 2011Q2

REPORT INFORMATION
  Report Type: 
  Country: None (occurrence: None)
  Receive Date: 20110407
  Receipt Date: 20110401
  Transmission Date: 20111010
  Serious: Yes (Other)
  Sender: FDA-Public Use
  Company Number: GB-ROCHE-769166

PATIENT
  Sex: Male

DRUGS (1)
  1. PEGASYS [Suspect]
     Route: 065
     Dates: start: 20080601

REACTIONS (1)
  - PARKINSON'S DISEASE [None]
